FAERS Safety Report 17507892 (Version 6)
Quarter: 2022Q4

REPORT INFORMATION
  Report Type: Spontaneous
  Country: US (occurrence: None)
  Receive Date: 20200306
  Receipt Date: 20221221
  Transmission Date: 20230112
  Serious: Yes (Other)
  Sender: FDA-Public Use
  Company Number: 2018SF65392

PATIENT
  Age: 19591 Day
  Sex: Female
  Weight: 95.3 kg

DRUGS (93)
  1. PRILOSEC OTC [Suspect]
     Active Substance: OMEPRAZOLE MAGNESIUM
     Indication: Gastrooesophageal reflux disease
     Dosage: FOR VARIOUS DATES AND YEARS BEGINNING IN OR PRIOR TO 2006
     Route: 048
  2. PRILOSEC OTC [Suspect]
     Active Substance: OMEPRAZOLE MAGNESIUM
     Indication: Dyspepsia
     Dosage: FOR VARIOUS DATES AND YEARS BEGINNING IN OR PRIOR TO 2006
     Route: 048
  3. PRILOSEC OTC [Suspect]
     Active Substance: OMEPRAZOLE MAGNESIUM
     Indication: Gastrooesophageal reflux disease
     Route: 048
     Dates: start: 2005, end: 2013
  4. PRILOSEC OTC [Suspect]
     Active Substance: OMEPRAZOLE MAGNESIUM
     Indication: Dyspepsia
     Route: 048
     Dates: start: 2005, end: 2013
  5. PRILOSEC OTC [Suspect]
     Active Substance: OMEPRAZOLE MAGNESIUM
     Indication: Gastrooesophageal reflux disease
     Route: 048
     Dates: start: 20060329
  6. PRILOSEC OTC [Suspect]
     Active Substance: OMEPRAZOLE MAGNESIUM
     Indication: Dyspepsia
     Route: 048
     Dates: start: 20060329
  7. PRILOSEC OTC [Suspect]
     Active Substance: OMEPRAZOLE MAGNESIUM
     Indication: Gastrooesophageal reflux disease
     Route: 048
     Dates: start: 20061214
  8. PRILOSEC OTC [Suspect]
     Active Substance: OMEPRAZOLE MAGNESIUM
     Indication: Dyspepsia
     Route: 048
     Dates: start: 20061214
  9. OMEPRAZOLE [Suspect]
     Active Substance: OMEPRAZOLE
     Indication: Gastrooesophageal reflux disease
     Dosage: GENERIC
     Route: 065
     Dates: start: 2013
  10. OMEPRAZOLE [Suspect]
     Active Substance: OMEPRAZOLE
     Indication: Dyspepsia
     Dosage: GENERIC
     Route: 065
     Dates: start: 2013
  11. FERROUS SULFATE [Concomitant]
     Active Substance: FERROUS SULFATE
     Dates: start: 20060531
  12. CARISOPRODOL [Concomitant]
     Active Substance: CARISOPRODOL
     Dates: start: 20060719
  13. METFORMIN [Concomitant]
     Active Substance: METFORMIN HYDROCHLORIDE
     Indication: Diabetes mellitus
     Dates: start: 1998, end: 2006
  14. TRICOR [Concomitant]
     Active Substance: FENOFIBRATE
  15. ACETAMINOPHEN\OXYCODONE HYDROCHLORIDE [Concomitant]
     Active Substance: ACETAMINOPHEN\OXYCODONE HYDROCHLORIDE
     Indication: Neck pain
     Dosage: 2016 OR 2017
  16. BACLOFEN [Concomitant]
     Active Substance: BACLOFEN
     Indication: Muscle relaxant therapy
     Dates: start: 2017, end: 2018
  17. STOOL SOFTENER (DOCUSATE) [Concomitant]
     Active Substance: DOCUSATE
     Indication: Constipation
     Dosage: CVS
     Dates: start: 2019
  18. PREGABALIN [Concomitant]
     Active Substance: PREGABALIN
     Indication: Neuralgia
     Dates: start: 2014, end: 2018
  19. LISINOPRIL [Concomitant]
     Active Substance: LISINOPRIL
     Indication: Renal disorder
     Dates: start: 2017, end: 2018
  20. FUROSEMIDE [Concomitant]
     Active Substance: FUROSEMIDE
     Indication: Fluid imbalance
     Dates: start: 2019
  21. CVS PURELAX [Concomitant]
     Indication: Constipation
     Dates: start: 2018, end: 2019
  22. AMLODIPINE [Concomitant]
     Active Substance: AMLODIPINE BESYLATE
     Indication: Blood pressure abnormal
     Dates: start: 202002
  23. LEVOTHYROXINE [Concomitant]
     Active Substance: LEVOTHYROXINE
     Indication: Hypothyroidism
  24. FLUTICASONE [Concomitant]
     Active Substance: FLUTICASONE
     Indication: Asthma
  25. FLUTICASONE [Concomitant]
     Active Substance: FLUTICASONE
     Indication: Chronic obstructive pulmonary disease
  26. AZELASTINE HYDROCHLORIDE [Concomitant]
     Active Substance: AZELASTINE HYDROCHLORIDE
     Indication: Asthma
  27. AZELASTINE HYDROCHLORIDE [Concomitant]
     Active Substance: AZELASTINE HYDROCHLORIDE
     Indication: Chronic obstructive pulmonary disease
  28. GLIPIZIDE [Concomitant]
     Active Substance: GLIPIZIDE
     Indication: Diabetes mellitus
  29. CLOTRIMAZOLE [Concomitant]
     Active Substance: CLOTRIMAZOLE
     Indication: Infection
     Dates: start: 2001
  30. SPIRIVA [Concomitant]
     Active Substance: TIOTROPIUM BROMIDE MONOHYDRATE
     Indication: Asthma
     Dates: start: 1987
  31. VENTOLIN [Concomitant]
     Active Substance: ALBUTEROL SULFATE
     Indication: Asthma
     Dates: start: 1987
  32. QUETIAPINE FUMARATE [Concomitant]
     Active Substance: QUETIAPINE FUMARATE
     Indication: Psychotic disorder
     Dates: start: 2012
  33. QUETIAPINE FUMARATE [Concomitant]
     Active Substance: QUETIAPINE FUMARATE
     Indication: Depression
     Dates: start: 2012
  34. NARCAN [Concomitant]
     Active Substance: NALOXONE HYDROCHLORIDE
     Indication: Overdose
     Dates: start: 2019
  35. BAYER CHEWABLE [Concomitant]
     Indication: Headache
     Dates: start: 2018, end: 2019
  36. BENADRYL [Concomitant]
     Active Substance: DIPHENHYDRAMINE HYDROCHLORIDE
     Indication: Multiple allergies
     Dosage: AS NEEDED
     Dates: start: 2019
  37. FLEXERIL [Concomitant]
     Active Substance: CYCLOBENZAPRINE HYDROCHLORIDE
     Indication: Muscle spasms
  38. FLONASE [Concomitant]
     Active Substance: FLUTICASONE PROPIONATE
  39. HYDRODIURIL [Concomitant]
     Active Substance: HYDROCHLOROTHIAZIDE
  40. JANUVIA [Concomitant]
     Active Substance: SITAGLIPTIN PHOSPHATE
  41. DYAZIDE [Concomitant]
     Active Substance: HYDROCHLOROTHIAZIDE\TRIAMTERENE
  42. OXYCONTIN [Concomitant]
     Active Substance: OXYCODONE HYDROCHLORIDE
  43. LOVENOX [Concomitant]
     Active Substance: ENOXAPARIN SODIUM
  44. QVAR [Concomitant]
     Active Substance: BECLOMETHASONE DIPROPIONATE
  45. ELAVIL [Concomitant]
     Active Substance: AMITRIPTYLINE HYDROCHLORIDE
  46. VITAMIN D3 [Concomitant]
     Active Substance: CHOLECALCIFEROL
  47. GLUCOPHAGE [Concomitant]
     Active Substance: METFORMIN HYDROCHLORIDE
  48. ECONAZOLE [Concomitant]
     Active Substance: ECONAZOLE
  49. POLYETHYLENE GLYCOL [Concomitant]
     Active Substance: POLYETHYLENE GLYCOL
  50. METHADONE [Concomitant]
     Active Substance: METHADONE HYDROCHLORIDE
  51. VALIUM [Concomitant]
     Active Substance: DIAZEPAM
  52. NORCO [Concomitant]
     Active Substance: ACETAMINOPHEN\HYDROCODONE BITARTRATE
  53. SENNA [Concomitant]
     Active Substance: SENNA LEAF\SENNOSIDES\SENNOSIDES A AND B
  54. LACTULOSE [Concomitant]
     Active Substance: LACTULOSE
  55. VOLTAREN [Concomitant]
     Active Substance: DICLOFENAC SODIUM
  56. PREMARIN [Concomitant]
     Active Substance: ESTROGENS, CONJUGATED
  57. LIDOCAINE [Concomitant]
     Active Substance: LIDOCAINE
  58. FENTANYL [Concomitant]
     Active Substance: FENTANYL
  59. VERSED [Concomitant]
     Active Substance: MIDAZOLAM HYDROCHLORIDE
  60. KENALOG [Concomitant]
     Active Substance: TRIAMCINOLONE ACETONIDE
  61. BUPIVACAINE [Concomitant]
     Active Substance: BUPIVACAINE
  62. CEPHALEXIN [Concomitant]
     Active Substance: CEPHALEXIN
  63. DILAUDID [Concomitant]
     Active Substance: HYDROMORPHONE HYDROCHLORIDE
  64. LEVOXYL [Concomitant]
     Active Substance: LEVOTHYROXINE SODIUM
  65. MORPHINE [Concomitant]
     Active Substance: MORPHINE
  66. TRIAMTERENE [Concomitant]
     Active Substance: TRIAMTERENE
  67. DOCUSATE [Concomitant]
     Active Substance: DOCUSATE
  68. RISPERIDONE [Concomitant]
     Active Substance: RISPERIDONE
  69. HEPARIN [Concomitant]
     Active Substance: HEPARIN SODIUM
  70. IRON [Concomitant]
     Active Substance: IRON
  71. ERYTHROMYCIN [Concomitant]
     Active Substance: ERYTHROMYCIN
  72. ATROPA BELLADONNA\HOMEOPATHICS [Concomitant]
     Active Substance: ATROPA BELLADONNA\HOMEOPATHICS
  73. OXYMORPHONE [Concomitant]
     Active Substance: OXYMORPHONE
  74. GENTAMICIN [Concomitant]
     Active Substance: GENTAMICIN
  75. PRIMAXIN IV [Concomitant]
     Active Substance: CILASTATIN SODIUM\IMIPENEM
  76. NOVOLOG [Concomitant]
     Active Substance: INSULIN ASPART
  77. MAGNESIUM SULFATE [Concomitant]
     Active Substance: MAGNESIUM SULFATE
  78. PYRIDIUM [Concomitant]
     Active Substance: PHENAZOPYRIDINE
  79. PNEUMOVAX 23 [Concomitant]
     Active Substance: PNEUMOCOCCAL VACCINE, POLYVALENT 23
  80. SODIUM CHLORIDE [Concomitant]
     Active Substance: SODIUM CHLORIDE
  81. RESTORIL [Concomitant]
     Active Substance: TEMAZEPAM
  82. DULCOLAX NOS [Concomitant]
     Active Substance: BISACODYL OR DOCUSATE SODIUM
  83. IOHEXOL [Concomitant]
     Active Substance: IOHEXOL
  84. SYMBICORT [Concomitant]
     Active Substance: BUDESONIDE\FORMOTEROL FUMARATE DIHYDRATE
  85. MILK OF MAGNESIA [Concomitant]
     Active Substance: MAGNESIUM HYDROXIDE
  86. NAPROSYN [Concomitant]
     Active Substance: NAPROXEN
  87. SUCCINYLCHOLINE [Concomitant]
     Active Substance: SUCCINYLCHOLINE
  88. PROPOFOL [Concomitant]
     Active Substance: PROPOFOL
  89. PAROXETINE [Concomitant]
     Active Substance: PAROXETINE
  90. ACETAMINOPHEN AND CODEINE [Concomitant]
     Active Substance: ACETAMINOPHEN\CODEINE PHOSPHATE
  91. GLYBURIDE [Concomitant]
     Active Substance: GLYBURIDE
  92. DEMEROL [Concomitant]
     Active Substance: MEPERIDINE HYDROCHLORIDE
  93. SOTULAB [Concomitant]

REACTIONS (6)
  - Chronic kidney disease [Not Recovered/Not Resolved]
  - Renal failure [Unknown]
  - Nephrogenic anaemia [Unknown]
  - Chronic kidney disease-mineral and bone disorder [Unknown]
  - Tubulointerstitial nephritis [Unknown]
  - Rebound acid hypersecretion [Unknown]

NARRATIVE: CASE EVENT DATE: 20150209
